FAERS Safety Report 7176613-3 (Version None)
Quarter: 2010Q4

REPORT INFORMATION
  Report Type: 
  Country: None (occurrence: None)
  Receive Date: 20101220
  Receipt Date: 20101206
  Transmission Date: 20110411
  Serious: Yes (Other)
  Sender: FDA-Public Use
  Company Number: PHHY2010BE82523

PATIENT
  Age: 60 Year
  Sex: Female

DRUGS (4)
  1. SANDIMMUNE [Suspect]
     Indication: LARGE GRANULAR LYMPHOCYTOSIS
     Dosage: 150- 175 MG DAILY
  2. SANDIMMUNE [Suspect]
     Dosage: 50 MG DAILY
     Dates: end: 20101129
  3. APROVEL [Concomitant]
     Indication: HYPERTENSION
  4. EMCONCOR [Concomitant]

REACTIONS (4)
  - ALVEOLITIS [None]
  - COUGH [None]
  - DYSPNOEA [None]
  - INTERSTITIAL LUNG DISEASE [None]
